FAERS Safety Report 9522738 (Version 1)
Quarter: 2013Q3

REPORT INFORMATION
  Report Type: Spontaneous
  Country: US (occurrence: US)
  Receive Date: 20130913
  Receipt Date: 20130913
  Transmission Date: 20140515
  Serious: Yes (Hospitalization, Other)
  Sender: FDA-Public Use
  Company Number: US-JNJFOC-20130901219

PATIENT
  Age: 59 Year
  Sex: Female
  Weight: 56.7 kg

DRUGS (3)
  1. LEVAQUIN [Suspect]
     Indication: PNEUMONIA
     Route: 048
     Dates: start: 20081214, end: 200812
  2. CIPROFLOXACIN [Suspect]
     Indication: PNEUMONIA
     Route: 042
     Dates: start: 20081214, end: 200812
  3. PROZAC [Concomitant]
     Indication: DEPRESSION
     Route: 065
     Dates: start: 200710, end: 200901

REACTIONS (4)
  - Mental disorder [Unknown]
  - Toxicity to various agents [Unknown]
  - Tendonitis [Unknown]
  - Malaise [Unknown]
